FAERS Safety Report 4469565-8 (Version None)
Quarter: 2004Q4

REPORT INFORMATION
  Report Type: 
  Country: None (occurrence: None)
  Receive Date: 20041005
  Receipt Date: 20041005
  Transmission Date: 20050328
  Serious: Yes (Life-Threatening, Hospitalization)
  Sender: FDA-Public Use
  Company Number: None

PATIENT
  Sex: Female
  Weight: 64.4108 kg

DRUGS (2)
  1. VIOXX [Suspect]
     Indication: ARTHRALGIA
     Dosage: 1 TABLET   DAILY   ORAL
     Route: 048
     Dates: start: 20011127, end: 20040929
  2. VIOXX [Suspect]
     Indication: BACK PAIN
     Dosage: 1 TABLET   DAILY   ORAL
     Route: 048
     Dates: start: 20011127, end: 20040929

REACTIONS (1)
  - COLITIS ISCHAEMIC [None]
